FAERS Safety Report 7233348-6 (Version None)
Quarter: 2011Q1

REPORT INFORMATION
  Report Type: 
  Country: None (occurrence: None)
  Receive Date: 20110119
  Receipt Date: 20110114
  Transmission Date: 20110831
  Serious: Yes (Death, Other)
  Sender: FDA-Public Use
  Company Number: PHHY2011GB02936

PATIENT
  Age: 63 Year
  Sex: Female

DRUGS (2)
  1. METHADONE [Suspect]
     Indication: PAIN
     Dosage: 15 MG, BID
     Route: 048
     Dates: start: 20100304
  2. DIAZEPAM [Suspect]

REACTIONS (1)
  - TOXICITY TO VARIOUS AGENTS [None]
